FAERS Safety Report 4725008-8 (Version None)
Quarter: 2005Q3

REPORT INFORMATION
  Report Type: 
  Country: None (occurrence: None)
  Receive Date: 20050722
  Receipt Date: 20050712
  Transmission Date: 20060218
  Serious: Yes (Other)
  Sender: FDA-Public Use
  Company Number: 2005-06-0059

PATIENT
  Sex: Female

DRUGS (3)
  1. CLARINEX [Suspect]
     Indication: PRURITUS
     Dosage: 5 MG; ORAL
     Route: 048
     Dates: start: 20050401, end: 20050401
  2. VALSARTAN/HYDROCHLOROTHIAZIDE TABLETS [Suspect]
     Indication: HYPERTENSION
     Dosage: 92/5 MG; ORAL
     Route: 048
     Dates: start: 20030101
  3. VALERIAN EXTRACT [Concomitant]

REACTIONS (5)
  - FATIGUE [None]
  - HYPOTENSION [None]
  - NAUSEA [None]
  - VISION BLURRED [None]
  - VOMITING [None]
